FAERS Safety Report 24415208 (Version 1)
Quarter: 2024Q4

REPORT INFORMATION
  Report Type: Spontaneous
  Country: NL (occurrence: NL)
  Receive Date: 20241009
  Receipt Date: 20241009
  Transmission Date: 20250114
  Serious: Yes (Hospitalization)
  Sender: BAXTER
  Company Number: None

PATIENT
  Age: 52 Year
  Sex: Female
  Weight: 157 kg

DRUGS (7)
  1. DOXORUBICIN [Suspect]
     Active Substance: DOXORUBICIN
     Indication: B-cell lymphoma
     Dosage: 1X100MG, INF CONC, BRAND NAME NOT SPECIFIED
     Route: 042
     Dates: start: 20231130
  2. CYCLOPHOSPHAMIDE [Suspect]
     Active Substance: CYCLOPHOSPHAMIDE
     Indication: B-cell lymphoma
     Dosage: 1X 1500MG, INJECTION/INFUSION, BRAND NAME NOT SPECIFIED
     Route: 042
     Dates: start: 20231130
  3. RITUXIMAB [Suspect]
     Active Substance: RITUXIMAB
     Indication: B-cell lymphoma
     Dosage: 1X 100MG, BRAND NAME NOT SPECIFIED
     Route: 042
     Dates: start: 20231130
  4. VINCRISTINE [Suspect]
     Active Substance: VINCRISTINE
     Indication: B-cell lymphoma
     Dosage: 1X 2MG, BRAND NAME NOT SPECIFIED
     Route: 042
     Dates: start: 20231130
  5. PREDNISOLONE [Suspect]
     Active Substance: PREDNISOLONE
     Indication: B-cell lymphoma
     Dosage: 100 MG PER DAY, BRAND NAME NOT SPECIFIED
     Route: 065
     Dates: start: 20231130
  6. FOLIC ACID [Concomitant]
     Active Substance: FOLIC ACID
     Dosage: 5 MG, (BRAND NAME NOT SPECIFIED)
     Route: 065
  7. METOCLOPRAMIDE [Concomitant]
     Active Substance: METOCLOPRAMIDE
     Dosage: 10 MG, BRAND NAME NOT SPECIFIED
     Route: 065

REACTIONS (2)
  - Angular cheilitis [Recovered/Resolved]
  - Mucosal inflammation [Recovered/Resolved]
